FAERS Safety Report 10717981 (Version 5)
Quarter: 2015Q4

REPORT INFORMATION
  Report Type: Spontaneous
  Country: SE (occurrence: SE)
  Receive Date: 20150116
  Receipt Date: 20151123
  Transmission Date: 20160304
  Serious: Yes (Other)
  Sender: FDA-Public Use
  Company Number: SE-ALLERGAN-1500447US

PATIENT
  Age: 39 Year
  Sex: Female

DRUGS (3)
  1. BOTOX [Suspect]
     Active Substance: ONABOTULINUMTOXINA
     Indication: SKIN WRINKLING
     Dosage: ABOUT 10 UNITS, SINGLE
     Route: 030
     Dates: start: 20141219, end: 20141219
  2. BOTOX [Suspect]
     Active Substance: ONABOTULINUMTOXINA
     Indication: SKIN WRINKLING
     Dosage: JUST OVER 20 UNITS, SINGLE
     Route: 030
     Dates: start: 20141219, end: 20141219
  3. BOTOX [Suspect]
     Active Substance: ONABOTULINUMTOXINA
     Indication: SKIN WRINKLING
     Dosage: ABOUT 16 UNITS, SINGLE
     Route: 030
     Dates: start: 20141219, end: 20141219

REACTIONS (9)
  - Dizziness [Unknown]
  - Chills [Recovering/Resolving]
  - Paraesthesia [Recovering/Resolving]
  - Paraesthesia [Unknown]
  - Sensory loss [Recovered/Resolved]
  - Discomfort [Recovering/Resolving]
  - Off label use [Unknown]
  - Discomfort [Recovered/Resolved]
  - Throat irritation [Recovered/Resolved]

NARRATIVE: CASE EVENT DATE: 20141220
